FAERS Safety Report 6720668 (Version 1)
Quarter: 2020Q3

REPORT INFORMATION
  Report Type: Report from Study
  Country: US (occurrence: US)
  Receive Date: 20080807
  Receipt Date: 20080807
  Transmission Date: 20201104
  Serious: Yes (Hospitalization)
  Sender: FDA-Public Use
  Company Number: US-ROCHE-579142

PATIENT
  Age: 85 Year
  Sex: Female

DRUGS (2)
  1. 1 UNSPECIFIED DRUG [Concomitant]
     Dosage: DRUG REPORTED AS: OTHER MEDICATIONS.
  2. IBANDRONIC ACID. [Suspect]
     Active Substance: IBANDRONIC ACID
     Indication: OSTEOPOROSIS
     Route: 065

REACTIONS (1)
  - Cerebrovascular accident [Recovering/Resolving]

NARRATIVE: CASE EVENT DATE: 20080501
